FAERS Safety Report 21375712 (Version 1)
Quarter: 2022Q3

REPORT INFORMATION
  Report Type: Spontaneous
  Country: CN (occurrence: CN)
  Receive Date: 20220926
  Receipt Date: 20220926
  Transmission Date: 20221027
  Serious: Yes (Other)
  Sender: FDA-Public Use
  Company Number: CN-FreseniusKabi-FK202212697

PATIENT
  Age: 57 Year
  Sex: Male
  Weight: 57.00 kg

DRUGS (7)
  1. EGG PHOSPHOLIPIDS\GLYCERIN\MEDIUM-CHAIN TRIGLYCERIDES\SOYBEAN OIL [Suspect]
     Active Substance: EGG PHOSPHOLIPIDS\GLYCERIN\MEDIUM-CHAIN TRIGLYCERIDES\SOYBEAN OIL
     Indication: Symptomatic treatment
     Dosage: 250 ML
     Route: 041
     Dates: start: 20220815, end: 20220819
  2. OMEGAVEN [Suspect]
     Active Substance: FISH OIL
     Indication: Symptomatic treatment
     Route: 041
     Dates: start: 20220815, end: 20220819
  3. AMINO ACIDS, SOURCE UNSPECIFIED [Suspect]
     Active Substance: AMINO ACIDS, SOURCE UNSPECIFIED
     Indication: Symptomatic treatment
     Dosage: 750 ML
     Route: 041
     Dates: start: 20220815, end: 20220819
  4. ALBUMIN HUMAN [Suspect]
     Active Substance: ALBUMIN HUMAN
     Indication: Symptomatic treatment
     Route: 041
     Dates: start: 20220816, end: 20220821
  5. ALANYL GLUTAMINE [Suspect]
     Active Substance: ALANYL GLUTAMINE
     Indication: Symptomatic treatment
     Route: 041
     Dates: start: 20220815, end: 20220819
  6. CILASTATIN SODIUM\IMIPENEM [Concomitant]
     Active Substance: CILASTATIN SODIUM\IMIPENEM
     Indication: Symptomatic treatment
     Route: 041
     Dates: start: 20220814, end: 20220822
  7. VANCOMYCIN [Concomitant]
     Active Substance: VANCOMYCIN
     Indication: Symptomatic treatment
     Route: 041
     Dates: start: 20220816, end: 20220821

REACTIONS (1)
  - Anaphylactic shock [Recovering/Resolving]

NARRATIVE: CASE EVENT DATE: 20220819
